FAERS Safety Report 13546779 (Version 1)
Quarter: 2017Q2

REPORT INFORMATION
  Report Type: Spontaneous
  Country: FR (occurrence: FR)
  Receive Date: 20170515
  Receipt Date: 20170515
  Transmission Date: 20170830
  Serious: Yes (Hospitalization)
  Sender: FDA-Public Use
  Company Number: FR-LABORATOIRE HRA PHARMA-2020759

PATIENT
  Age: 28 Year
  Sex: Male

DRUGS (1)
  1. METOPIRONE [Suspect]
     Active Substance: METYRAPONE
     Indication: SUICIDE ATTEMPT
     Route: 048
     Dates: start: 20170405, end: 20170405

REACTIONS (8)
  - Intentional overdose [None]
  - Adrenocortical insufficiency acute [None]
  - Abdominal pain [None]
  - Nausea [None]
  - Transaminases increased [None]
  - Asthenia [None]
  - Rhabdomyolysis [None]
  - Vomiting [None]
